FAERS Safety Report 8381095-X (Version None)
Quarter: 2012Q2

REPORT INFORMATION
  Report Type: 
  Country: None (occurrence: None)
  Receive Date: 20120523
  Receipt Date: 20120518
  Transmission Date: 20120825
  Serious: No
  Sender: FDA-Public Use
  Company Number: US-PFIZER INC-2012121426

PATIENT
  Sex: Female
  Weight: 58.503 kg

DRUGS (7)
  1. VITAMIN D [Concomitant]
     Dosage: 2000 IU, 1X/DAY
  2. PREMARIN [Suspect]
     Indication: ATROPHIC VULVOVAGINITIS
     Dosage: UNK,  1X/DAY
     Route: 067
     Dates: start: 20120411, end: 20120401
  3. PREMARIN [Suspect]
     Dosage: UNK, 2X/WEEK
     Route: 067
     Dates: start: 20120401, end: 20120515
  4. FISH OIL [Concomitant]
     Dosage: UNK
  5. CITRACAL [Concomitant]
     Dosage: UNK
  6. VITAMIN D [Concomitant]
     Dosage: UNK
  7. MULTI-VITAMINS [Concomitant]
     Dosage: UNK, 1X/DAY

REACTIONS (2)
  - PAIN IN EXTREMITY [None]
  - MUSCLE SPASMS [None]
